FAERS Safety Report 6005399-0 (Version None)
Quarter: 2008Q4

REPORT INFORMATION
  Report Type: 
  Country: None (occurrence: None)
  Receive Date: 20081216
  Receipt Date: 20081210
  Transmission Date: 20090506
  Serious: Yes (Hospitalization)
  Sender: FDA-Public Use
  Company Number: CA-BRISTOL-MYERS SQUIBB COMPANY-13950837

PATIENT
  Age: 30 Year
  Sex: Female

DRUGS (13)
  1. ORENCIA [Suspect]
     Indication: JUVENILE ARTHRITIS
     Dosage: 16OCT,12JUN,9JUL,3AUG,6S,1OCT07,24JAN08,21F,20MAR(18APR,19MAY,13JUN,11JUL,15AUG,12SEP,7OCT,4NOVO8
     Route: 042
     Dates: start: 20070906
  2. PREDNISONE TAB [Concomitant]
  3. METOPROLOL [Concomitant]
  4. IMOVANE [Concomitant]
  5. CALCIUM [Concomitant]
  6. VITAMIN D [Concomitant]
  7. OXYCOCET [Concomitant]
  8. OXYCONTIN [Concomitant]
  9. TYLENOL NO 1 [Concomitant]
  10. GRAVOL TAB [Concomitant]
  11. IMODIUM [Concomitant]
     Indication: MIGRAINE
  12. RABEPRAZOLE SODIUM [Concomitant]
     Indication: MIGRAINE
  13. AXERT [Concomitant]
     Indication: MIGRAINE

REACTIONS (10)
  - ABDOMINAL DISCOMFORT [None]
  - ARTHRALGIA [None]
  - DEHYDRATION [None]
  - DYSGEUSIA [None]
  - HYPOTENSION [None]
  - MALAISE [None]
  - NAUSEA [None]
  - PAIN [None]
  - UROSEPSIS [None]
  - VOMITING [None]
